FAERS Safety Report 10905745 (Version 1)
Quarter: 2015Q1

REPORT INFORMATION
  Report Type: Spontaneous
  Country: US (occurrence: None)
  Receive Date: 20150309
  Receipt Date: 20150309
  Transmission Date: 20150721
  Serious: Yes (Hospitalization)
  Sender: FDA-Public Use
  Company Number: None

PATIENT
  Age: 57 Year
  Sex: Female
  Weight: 95.26 kg

DRUGS (3)
  1. BENICAR [Concomitant]
     Active Substance: OLMESARTAN MEDOXOMIL
  2. BISOPROLOL FUMARATE. [Suspect]
     Active Substance: BISOPROLOL FUMARATE
     Indication: BLOOD PRESSURE
     Route: 048
     Dates: start: 20120601, end: 20140905
  3. BABY ASA [Concomitant]
     Active Substance: ASPIRIN

REACTIONS (2)
  - Heart rate decreased [None]
  - Palpitations [None]

NARRATIVE: CASE EVENT DATE: 20140905
